FAERS Safety Report 9494921 (Version 1)
Quarter: 2013Q3

REPORT INFORMATION
  Report Type: Spontaneous
  Country: JP (occurrence: JP)
  Receive Date: 20130903
  Receipt Date: 20130903
  Transmission Date: 20140515
  Serious: Yes (Death)
  Sender: FDA-Public Use
  Company Number: JP-ASTRAZENECA-2013SE66210

PATIENT
  Age: 30 Year
  Sex: Male

DRUGS (10)
  1. DIPRIVAN [Suspect]
     Indication: CONVULSION
     Route: 042
  2. DIPRIVAN [Suspect]
     Indication: CONVULSION
     Dosage: 5.6 MG/KG/HR
     Route: 042
  3. DIPRIVAN [Suspect]
     Indication: CONVULSION
     Dosage: 3.2 MG/KG/HR
     Route: 042
  4. MIDAZOLAM [Concomitant]
     Indication: CONVULSION
     Route: 042
  5. MIDAZOLAM [Concomitant]
     Indication: CONVULSION
     Dosage: 1.2 MG/KG/HR
     Route: 042
  6. MIDAZOLAM [Concomitant]
     Indication: CONVULSION
     Dosage: 0.4 MG/KG/HR
     Route: 042
  7. THIOPENTAL SODIUM [Concomitant]
     Indication: CONVULSION
     Dosage: 4.8 MG/KG/HR
     Route: 042
  8. MEROPENEM [Concomitant]
     Indication: ENCEPHALITIS
     Dosage: DOSE UNKNOWN
     Route: 041
  9. ACICLOVIR [Concomitant]
     Indication: ENCEPHALITIS
     Dosage: DOSE UNKNOWN
     Route: 065
  10. DEXAMETHASONE [Concomitant]
     Indication: ENCEPHALITIS
     Dosage: DOSE UNKNOWN
     Route: 065

REACTIONS (5)
  - Propofol infusion syndrome [Fatal]
  - Hyperkalaemia [Fatal]
  - Metabolic acidosis [Fatal]
  - Rhabdomyolysis [Fatal]
  - Hypertriglyceridaemia [Fatal]
